FAERS Safety Report 25214424 (Version 3)
Quarter: 2025Q3

REPORT INFORMATION
  Report Type: Spontaneous
  Country: EU (occurrence: EU)
  Receive Date: 20250418
  Receipt Date: 20250716
  Transmission Date: 20251021
  Serious: Yes (Hospitalization, Other)
  Sender: PFIZER
  Company Number: None

PATIENT
  Age: 42 Year
  Sex: Male
  Weight: 85 kg

DRUGS (21)
  1. CARBOPLATIN [Suspect]
     Active Substance: CARBOPLATIN
     Indication: Lung adenocarcinoma stage IV
     Route: 041
     Dates: start: 20241205, end: 20241226
  2. CARBOPLATIN [Suspect]
     Active Substance: CARBOPLATIN
     Route: 041
     Dates: start: 20250116, end: 20250116
  3. CARBOPLATIN [Suspect]
     Active Substance: CARBOPLATIN
     Route: 041
     Dates: start: 20250210, end: 20250210
  4. CARBOPLATIN [Suspect]
     Active Substance: CARBOPLATIN
     Route: 041
     Dates: start: 20250321, end: 20250321
  5. CARBOPLATIN [Suspect]
     Active Substance: CARBOPLATIN
     Route: 041
     Dates: start: 20250424
  6. CARBOPLATIN [Suspect]
     Active Substance: CARBOPLATIN
     Route: 041
     Dates: start: 20250515
  7. PEMETREXED [Suspect]
     Active Substance: PEMETREXED
     Indication: Lung adenocarcinoma stage IV
     Route: 041
     Dates: start: 20241205, end: 20241226
  8. PEMETREXED [Suspect]
     Active Substance: PEMETREXED
     Route: 041
     Dates: start: 20250116, end: 20250116
  9. PEMETREXED [Suspect]
     Active Substance: PEMETREXED
     Route: 041
     Dates: start: 20250210, end: 20250210
  10. PEMETREXED [Suspect]
     Active Substance: PEMETREXED
     Route: 041
     Dates: start: 20250321, end: 20250321
  11. PEMETREXED [Suspect]
     Active Substance: PEMETREXED
     Route: 041
     Dates: start: 20250424, end: 20250515
  12. PEMETREXED [Suspect]
     Active Substance: PEMETREXED
     Route: 041
     Dates: start: 20250612
  13. PEMETREXED [Suspect]
     Active Substance: PEMETREXED
     Route: 041
     Dates: start: 20250703
  14. AMIVANTAMAB [Suspect]
     Active Substance: AMIVANTAMAB
     Indication: Lung adenocarcinoma stage IV
     Route: 041
     Dates: start: 20241205, end: 20241226
  15. AMIVANTAMAB [Suspect]
     Active Substance: AMIVANTAMAB
     Route: 041
     Dates: start: 20250116
  16. AMIVANTAMAB [Suspect]
     Active Substance: AMIVANTAMAB
     Route: 041
     Dates: start: 20250210
  17. AMIVANTAMAB [Suspect]
     Active Substance: AMIVANTAMAB
     Route: 041
     Dates: start: 20250321
  18. EMEND [Concomitant]
     Active Substance: APREPITANT
  19. ONDANSETRON [Concomitant]
     Active Substance: ONDANSETRON
  20. PREDNISONE [Concomitant]
     Active Substance: PREDNISONE
  21. LANSOPRAZOLE [Concomitant]
     Active Substance: LANSOPRAZOLE

REACTIONS (4)
  - Hypokalaemia [Recovered/Resolved]
  - Renal impairment [Unknown]
  - Influenza [Unknown]
  - Blood magnesium decreased [Unknown]

NARRATIVE: CASE EVENT DATE: 20250219
